FAERS Safety Report 8906628 (Version 1)
Quarter: 2012Q4

REPORT INFORMATION
  Report Type: 
  Country: US (occurrence: US)
  Receive Date: 20121114
  Receipt Date: 20121114
  Transmission Date: 20130627
  Serious: Yes (Hospitalization)
  Sender: FDA-Public Use
  Company Number: US-ELI_LILLY_AND_COMPANY-US201211001957

PATIENT
  Age: 51 Year
  Sex: Male

DRUGS (3)
  1. AXIRON [Suspect]
     Indication: BLOOD TESTOSTERONE DECREASED
     Dosage: 60 mg, qd
     Route: 061
  2. AXIRON [Suspect]
     Dosage: 90 mg, single
     Route: 061
     Dates: start: 20121105, end: 20121105
  3. AXIRON [Suspect]
     Dosage: 120 mg, qd
     Route: 061
     Dates: start: 20121106

REACTIONS (3)
  - Hernia repair [Unknown]
  - Drug effect incomplete [Unknown]
  - Anxiety [Unknown]
